FAERS Safety Report 11442582 (Version 3)
Quarter: 2016Q3

REPORT INFORMATION
  Report Type: Report from Study
  Country: ID (occurrence: ID)
  Receive Date: 20150901
  Receipt Date: 20160705
  Transmission Date: 20161109
  Serious: Yes (Death, Hospitalization, Other)
  Sender: FDA-Public Use
  Company Number: ID-BAYER-2014-175131

PATIENT
  Age: 49 Year
  Sex: Male

DRUGS (2)
  1. NEXAVAR [Suspect]
     Active Substance: SORAFENIB
     Indication: HEPATOCELLULAR CARCINOMA
     Dosage: UNK
     Route: 048
     Dates: start: 20140917, end: 20141020
  2. NEXAVAR [Suspect]
     Active Substance: SORAFENIB
     Indication: HEPATOCELLULAR CARCINOMA
     Dosage: 200 MG, BID
     Route: 048
     Dates: start: 20141106, end: 20150820

REACTIONS (9)
  - Hypophagia [None]
  - Abdominal distension [Recovered/Resolved]
  - Rash [Not Recovered/Not Resolved]
  - Dysphonia [None]
  - Dyspnoea [Fatal]
  - Hypoaesthesia [None]
  - Abdominal discomfort [None]
  - Hepatocellular carcinoma [Fatal]
  - Palmar-plantar erythrodysaesthesia syndrome [None]

NARRATIVE: CASE EVENT DATE: 20141124
